FAERS Safety Report 4424702-6 (Version None)
Quarter: 2004Q3

REPORT INFORMATION
  Report Type: 
  Country: None (occurrence: None)
  Receive Date: 20040809
  Receipt Date: 20040727
  Transmission Date: 20050211
  Serious: Yes (Hospitalization)
  Sender: FDA-Public Use
  Company Number: 2004AP02951

PATIENT
  Age: 81 Year
  Sex: Male

DRUGS (5)
  1. MEROPEN [Suspect]
     Indication: PYREXIA
     Dosage: 0.5 G BID IVD
     Dates: start: 20040207, end: 20040213
  2. MODACIN [Suspect]
     Dates: start: 20040130
  3. CLINDAMYCIN PHOSPHATE [Suspect]
     Indication: PYREXIA
     Dosage: 600 MG BID IVD
     Route: 041
     Dates: start: 20040205, end: 20040212
  4. IMIPENEM + CILASTATIN [Suspect]
     Dates: start: 20040213
  5. VANCOMYCIN [Concomitant]

REACTIONS (7)
  - C-REACTIVE PROTEIN INCREASED [None]
  - CLOSTRIDIUM COLITIS [None]
  - DIARRHOEA [None]
  - DRUG INEFFECTIVE [None]
  - GANGLION [None]
  - PYREXIA [None]
  - WHITE BLOOD CELL COUNT INCREASED [None]
